FAERS Safety Report 21612694 (Version 1)
Quarter: 2022Q4

REPORT INFORMATION
  Report Type: Spontaneous
  Country: FR (occurrence: FR)
  Receive Date: 20221118
  Receipt Date: 20221118
  Transmission Date: 20230112
  Serious: Yes (Hospitalization)
  Sender: FDA-Public Use
  Company Number: FR-AFSSAPS-NT20222753

PATIENT
  Age: 18 Year
  Sex: Female
  Weight: 47 kg

DRUGS (2)
  1. OLANZAPINE [Suspect]
     Active Substance: OLANZAPINE
     Indication: Toxicity to various agents
     Dosage: 20 DOSAGE FORM
     Route: 048
     Dates: start: 20221014, end: 20221014
  2. TERALITHE [Suspect]
     Active Substance: LITHIUM CARBONATE
     Indication: Toxicity to various agents
     Dosage: 8 DOSAGE FORM
     Route: 048
     Dates: start: 20221014, end: 20221014

REACTIONS (4)
  - Intentional overdose [Recovered/Resolved]
  - Myoclonus [Recovered/Resolved]
  - Tachycardia [Recovered/Resolved]
  - Disturbance in attention [Recovered/Resolved]

NARRATIVE: CASE EVENT DATE: 20221014
